FAERS Safety Report 9119542 (Version 1)
Quarter: 2013Q1

REPORT INFORMATION
  Report Type: Spontaneous
  Country: US (occurrence: US)
  Receive Date: 20130226
  Receipt Date: 20130226
  Transmission Date: 20140127
  Serious: Yes (Hospitalization)
  Sender: FDA-Public Use
  Company Number: US-BAYER-2013-022121

PATIENT
  Age: 41 Year
  Sex: Female
  Weight: 117.91 kg

DRUGS (10)
  1. OCELLA [Suspect]
     Dosage: UNK
  2. OCELLA [Suspect]
     Dosage: UNK
  3. OCELLA [Suspect]
  4. YAZ [Suspect]
     Dosage: UNK
  5. YASMIN [Suspect]
     Indication: CONTRACEPTION
  6. ORTHO-NOVUM 7/7/7 [Concomitant]
     Dosage: UNK
     Dates: start: 20010127, end: 20010811
  7. MELOXICAM [Concomitant]
     Dosage: 15 MG, QD
     Route: 048
  8. LEXAPRO [Concomitant]
     Dosage: 5 MG, QD
     Route: 048
  9. ADVIL [Concomitant]
  10. JANTOVEN [Concomitant]

REACTIONS (1)
  - Pulmonary embolism [None]
